FAERS Safety Report 8449004-2 (Version None)
Quarter: 2012Q2

REPORT INFORMATION
  Report Type: 
  Country: None (occurrence: None)
  Receive Date: 20120619
  Receipt Date: 20120605
  Transmission Date: 20120825
  Serious: No
  Sender: FDA-Public Use
  Company Number: US-B.I. PHARMACEUTICALS,INC./RIDGEFIELD-2012-BP-13105BP

PATIENT
  Sex: Female

DRUGS (16)
  1. CATAPRES [Suspect]
     Dosage: 0.2 MG
  2. MOTRIN [Suspect]
  3. HYDROCHLOROTHIAZIDE [Suspect]
  4. IRBESARTAN [Suspect]
     Indication: HYPERTENSION
     Dates: start: 20120405, end: 20120405
  5. TOPROL-XL [Suspect]
     Dosage: 25 MG
  6. XYZAL [Concomitant]
     Dosage: 5 MG
  7. AZOR [Suspect]
  8. BENICAR HCT [Suspect]
  9. MICARDIS [Suspect]
     Dosage: 40 MG
  10. TEKTURNA HCT [Suspect]
  11. ATACAND HCT [Suspect]
  12. AMLODIPINE BESYLATE [Suspect]
  13. DIOVAN HCT [Concomitant]
  14. BYSTOLIC [Suspect]
  15. ATENOLOL [Suspect]
     Dosage: 50 MG
  16. LISINOPRIL [Suspect]
     Dosage: 10 MG

REACTIONS (4)
  - BURNING SENSATION [None]
  - HYPERSENSITIVITY [None]
  - HYPOPNOEA [None]
  - PRURITUS [None]
